FAERS Safety Report 6435305-6 (Version None)
Quarter: 2009Q4

REPORT INFORMATION
  Report Type: 
  Country: None (occurrence: None)
  Receive Date: 20091106
  Receipt Date: 20091024
  Transmission Date: 20100525
  Serious: Yes (Hospitalization)
  Sender: FDA-Public Use
  Company Number: 002209

PATIENT
  Sex: Female

DRUGS (2)
  1. NEUPRO [Suspect]
     Dosage: 2 MG 1X /24 HOURS TRANSDERMAL
     Route: 062
     Dates: start: 20091020
  2. RESTEX [Concomitant]

REACTIONS (4)
  - OCULAR HYPERAEMIA [None]
  - RASH [None]
  - RETINAL TEAR [None]
  - SKIN IRRITATION [None]
